FAERS Safety Report 25338732 (Version 1)
Quarter: 2025Q2

REPORT INFORMATION
  Report Type: Report from Study
  Country: CA (occurrence: CA)
  Receive Date: 20250520
  Receipt Date: 20250520
  Transmission Date: 20250717
  Serious: Yes (Death, Other)
  Sender: TAKEDA
  Company Number: CA-TAKEDA-2025TUS047344

PATIENT
  Age: 60 Year
  Sex: Female

DRUGS (17)
  1. HUMAN IMMUNOGLOBULIN G [Suspect]
     Active Substance: HUMAN IMMUNOGLOBULIN G
     Indication: Secondary immunodeficiency
     Dosage: 7 GRAM, 1/WEEK
     Dates: start: 20211108
  2. BREO ELLIPTA [Concomitant]
     Active Substance: FLUTICASONE FUROATE\VILANTEROL TRIFENATATE
  3. INCRUSE ELLIPTA [Concomitant]
     Active Substance: UMECLIDINIUM BROMIDE
  4. VENTOLIN [Concomitant]
     Active Substance: ALBUTEROL SULFATE
  5. ALBUTEROL [Concomitant]
     Active Substance: ALBUTEROL
  6. RABEPRAZOLE [Concomitant]
     Active Substance: RABEPRAZOLE
  7. NORTRIPTYLINE [Concomitant]
     Active Substance: NORTRIPTYLINE
  8. PREDNISONE [Concomitant]
     Active Substance: PREDNISONE
  9. FLUCONAZOLE [Concomitant]
     Active Substance: FLUCONAZOLE
  10. IVABRADINE [Concomitant]
     Active Substance: IVABRADINE
  11. VALACYCLOVIR [Concomitant]
     Active Substance: VALACYCLOVIR HYDROCHLORIDE
  12. SULFATRIM [Concomitant]
     Active Substance: SULFAMETHOXAZOLE\TRIMETHOPRIM
  13. NASONEX [Concomitant]
     Active Substance: MOMETASONE FUROATE
  14. ZOPICLONE [Concomitant]
     Active Substance: ZOPICLONE
  15. ONDANSETRON [Concomitant]
     Active Substance: ONDANSETRON
  16. NUCALA [Concomitant]
     Active Substance: MEPOLIZUMAB
  17. ACLASTA [Concomitant]
     Active Substance: ZOLEDRONIC ACID

REACTIONS (1)
  - Death [Fatal]

NARRATIVE: CASE EVENT DATE: 20250201
